FAERS Safety Report 9855112 (Version 1)
Quarter: 2014Q1

REPORT INFORMATION
  Report Type: Spontaneous
  Country: CA (occurrence: None)
  Receive Date: 20140127
  Receipt Date: 20140127
  Transmission Date: 20141002
  Serious: Yes (Other)
  Sender: FDA-Public Use
  Company Number: 2014-0185-SPO

PATIENT
  Age: 67 Year
  Sex: Female

DRUGS (4)
  1. ESTROGEL [Suspect]
     Indication: PRODUCT USED FOR UNKNOWN INDICATION
     Route: 061
  2. CELEBREX (CELECOXIB) [Concomitant]
  3. TEMAZEPAM (TEMAZEPAM) [Concomitant]
  4. VOLTAREN EMULGEL (DICLOFENAC DIETHYLAMINE) [Concomitant]

REACTIONS (1)
  - Skin plaque [None]
